FAERS Safety Report 9022425 (Version 1)
Quarter: 2013Q1

REPORT INFORMATION
  Report Type: Spontaneous
  Country: IT (occurrence: IT)
  Receive Date: 20130118
  Receipt Date: 20130118
  Transmission Date: 20140127
  Serious: Yes (Hospitalization)
  Sender: FDA-Public Use
  Company Number: IT-PFIZER INC-2013020374

PATIENT
  Age: 83 Year
  Sex: Female

DRUGS (3)
  1. ATENOLOL [Suspect]
     Indication: HYPERTENSION
     Dosage: 25 MG, DAILY
     Route: 048
     Dates: start: 20121216, end: 20121218
  2. COUMADIN [Concomitant]
     Dosage: UNK
     Route: 065
  3. LASIX [Concomitant]
     Dosage: UNK
     Route: 065

REACTIONS (1)
  - Atrioventricular block second degree [Recovering/Resolving]
